FAERS Safety Report 11396704 (Version 1)
Quarter: 2015Q3

REPORT INFORMATION
  Report Type: Spontaneous
  Country: US (occurrence: US)
  Receive Date: 20150819
  Receipt Date: 20150819
  Transmission Date: 20151125
  Serious: Yes (Hospitalization, Other)
  Sender: FDA-Public Use
  Company Number: US-GLAXOSMITHKLINE-US2015118087

PATIENT
  Age: 71 Year
  Sex: Female

DRUGS (12)
  1. FUROSEMIDE. [Concomitant]
     Active Substance: FUROSEMIDE
  2. NABUMETONE. [Concomitant]
     Active Substance: NABUMETONE
  3. TRAMADOL. [Concomitant]
     Active Substance: TRAMADOL
  4. ATORVASTATIN [Concomitant]
     Active Substance: ATORVASTATIN
  5. GABAPENTIN. [Concomitant]
     Active Substance: GABAPENTIN
  6. ASPIRIN. [Concomitant]
     Active Substance: ASPIRIN
  7. LOSARTAN-HCTZ [Concomitant]
     Active Substance: HYDROCHLOROTHIAZIDE\LOSARTAN
  8. SORIATANE [Suspect]
     Active Substance: ACITRETIN
     Route: 048
     Dates: start: 2011
  9. NEXIUM [Concomitant]
     Active Substance: ESOMEPRAZOLE MAGNESIUM
  10. CYCLOBENZAPRINE [Concomitant]
     Active Substance: CYCLOBENZAPRINE
  11. PROPRANOLOL [Concomitant]
     Active Substance: PROPRANOLOL\PROPRANOLOL HYDROCHLORIDE
  12. SORIATANE [Suspect]
     Active Substance: ACITRETIN
     Indication: SKIN CANCER
     Route: 048
     Dates: start: 2011

REACTIONS (3)
  - Arthritis [Recovered/Resolved]
  - Off label use [Not Recovered/Not Resolved]
  - Knee arthroplasty [Recovered/Resolved]

NARRATIVE: CASE EVENT DATE: 20150812
